FAERS Safety Report 4955757-8 (Version None)
Quarter: 2006Q1

REPORT INFORMATION
  Report Type: 
  Country: None (occurrence: None)
  Receive Date: 20060328
  Receipt Date: 20060314
  Transmission Date: 20060701
  Serious: Yes (Death)
  Sender: FDA-Public Use
  Company Number: AR-SANOFI-SYNTHELABO-A01200602249

PATIENT
  Age: 90 Year
  Sex: Female
  Weight: 40 kg

DRUGS (5)
  1. CLOPIDOGREL [Suspect]
     Indication: ACUTE CORONARY SYNDROME
     Dosage: UNK
     Route: 048
     Dates: start: 20050201
  2. ASPIRIN [Concomitant]
     Indication: DRUG USE FOR UNKNOWN INDICATION
     Dosage: 80 MG
     Route: 048
     Dates: start: 20050201
  3. BETA BLOCKER [Concomitant]
     Indication: DRUG USE FOR UNKNOWN INDICATION
     Dosage: UNK
     Route: 065
  4. CA ANTAGONIST [Concomitant]
     Indication: DRUG USE FOR UNKNOWN INDICATION
     Dosage: UNK
     Route: 065
     Dates: start: 20050201
  5. LIPID LOWERING AGENT [Concomitant]
     Dosage: UNK
     Route: 065
     Dates: start: 20050101

REACTIONS (1)
  - SEPSIS [None]
